FAERS Safety Report 12340957 (Version 1)
Quarter: 2016Q2

REPORT INFORMATION
  Report Type: Spontaneous
  Country: US (occurrence: None)
  Receive Date: 20160505
  Receipt Date: 20160505
  Transmission Date: 20160815
  Serious: Yes (Hospitalization)
  Sender: FDA-Public Use
  Company Number: None

PATIENT
  Age: 35 Year
  Sex: Female
  Weight: 81.1 kg

DRUGS (2)
  1. ALOE VERA [Suspect]
     Active Substance: ALOE VERA LEAF
     Indication: DYSPEPSIA
     Dates: start: 20150503, end: 20150503
  2. ACETAMINOPHEN. [Suspect]
     Active Substance: ACETAMINOPHEN
     Indication: PAIN
     Dates: start: 20150503, end: 20150503

REACTIONS (2)
  - Angioedema [None]
  - Stevens-Johnson syndrome [None]

NARRATIVE: CASE EVENT DATE: 20150503
